FAERS Safety Report 9171796 (Version 1)
Quarter: 2013Q1

REPORT INFORMATION
  Report Type: Spontaneous
  Country: GB (occurrence: GB)
  Receive Date: 20130319
  Receipt Date: 20130319
  Transmission Date: 20140127
  Serious: Yes (Death)
  Sender: FDA-Public Use
  Company Number: GB-ASTRAZENECA-2013SE17738

PATIENT
  Sex: 0

DRUGS (1)
  1. SEROQUEL [Suspect]
     Route: 055

REACTIONS (1)
  - Drug abuse [Fatal]
